FAERS Safety Report 5026868-6 (Version None)
Quarter: 2006Q2

REPORT INFORMATION
  Report Type: 
  Country: None (occurrence: None)
  Receive Date: 20060609
  Receipt Date: 20060525
  Transmission Date: 20061013
  Serious: Yes (Hospitalization)
  Sender: FDA-Public Use
  Company Number: 2006001101

PATIENT
  Sex: Male

DRUGS (2)
  1. TARCEVA [Suspect]
     Indication: METASTATIC BRONCHIAL CARCINOMA
     Dosage: 150 MG (QD), ORAL
     Route: 048
     Dates: start: 20060130
  2. CLARITHROMYCIN [Concomitant]

REACTIONS (3)
  - ANAEMIA [None]
  - DIARRHOEA [None]
  - DYSPNOEA [None]
